FAERS Safety Report 6577614-6 (Version None)
Quarter: 2010Q1

REPORT INFORMATION
  Report Type: 
  Country: None (occurrence: None)
  Receive Date: 20100211
  Receipt Date: 20100129
  Transmission Date: 20100710
  Serious: Yes (Other)
  Sender: FDA-Public Use
  Company Number: PHHY2010ZA04427

PATIENT
  Sex: Male

DRUGS (5)
  1. ZOMETA [Suspect]
     Indication: MULTIPLE MYELOMA
     Dosage: 4 MG, UNK
     Dates: start: 20050518, end: 20050818
  2. ZOMETA [Suspect]
     Dosage: 4 MG, UNK
     Dates: start: 20050918, end: 20060306
  3. BETANOID [Concomitant]
  4. MELPHALAN HYDROCHLORIDE [Concomitant]
  5. PREDNISONE [Concomitant]

REACTIONS (1)
  - OSTEONECROSIS [None]
